APPROVED DRUG PRODUCT: LUZU
Active Ingredient: LULICONAZOLE
Strength: 1%
Dosage Form/Route: CREAM;TOPICAL
Application: N204153 | Product #001
Applicant: BAUSCH HEALTH US LLC
Approved: Nov 14, 2013 | RLD: Yes | RS: Yes | Type: RX

PATENTS:
Patent 9012484 | Expires: Sep 6, 2033
Patent 9453006 | Expires: Sep 6, 2033
Patent 9199977 | Expires: Sep 6, 2033
Patent 8980931 | Expires: Apr 28, 2034